FAERS Safety Report 7930381-3 (Version None)
Quarter: 2011Q4

REPORT INFORMATION
  Report Type: 
  Country: None (occurrence: None)
  Receive Date: 20111117
  Receipt Date: 20111117
  Transmission Date: 20120403
  Serious: Yes (Other)
  Sender: FDA-Public Use
  Company Number: None

PATIENT
  Age: 48 Year
  Sex: Female
  Weight: 63.5036 kg

DRUGS (1)
  1. CRESTOR [Suspect]
     Indication: BLOOD CHOLESTEROL
     Dosage: 20 MG 1 AT NIGHT
     Dates: start: 20110919, end: 20111011

REACTIONS (4)
  - APHAGIA [None]
  - UNEVALUABLE EVENT [None]
  - FLUID INTAKE REDUCED [None]
  - PHARYNGEAL DISORDER [None]
